FAERS Safety Report 6242408-8 (Version None)
Quarter: 2009Q2

REPORT INFORMATION
  Report Type: 
  Country: None (occurrence: None)
  Receive Date: 20090624
  Receipt Date: 20090615
  Transmission Date: 20091009
  Serious: Yes (Other)
  Sender: FDA-Public Use
  Company Number: US-JNJFOC-20090403788

PATIENT
  Sex: Male
  Weight: 127.01 kg

DRUGS (5)
  1. REMICADE [Suspect]
     Indication: PSORIATIC ARTHROPATHY
     Route: 042
  2. ACTOS [Concomitant]
     Indication: DIABETES MELLITUS
     Route: 065
  3. CELEBREX [Concomitant]
     Route: 065
  4. ALLOPURINOL [Concomitant]
     Route: 065
  5. BENATAR [Concomitant]
     Indication: HYPERTENSION
     Route: 065

REACTIONS (18)
  - AMNESIA [None]
  - APHONIA [None]
  - ARTHRALGIA [None]
  - ASTHENIA [None]
  - DIZZINESS [None]
  - HEADACHE [None]
  - HYPOAESTHESIA [None]
  - MYALGIA [None]
  - NERVOUSNESS [None]
  - OEDEMA PERIPHERAL [None]
  - ORAL FUNGAL INFECTION [None]
  - PARAESTHESIA [None]
  - PULMONARY CONGESTION [None]
  - SKIN ATROPHY [None]
  - SKIN DISCOLOURATION [None]
  - SWELLING FACE [None]
  - TREMOR [None]
  - VISION BLURRED [None]
